FAERS Safety Report 21374652 (Version 1)
Quarter: 2022Q3

REPORT INFORMATION
  Report Type: Spontaneous
  Country: US (occurrence: US)
  Receive Date: 20220926
  Receipt Date: 20220926
  Transmission Date: 20221027
  Serious: Yes (Other)
  Sender: FDA-Public Use
  Company Number: US-ALLERGAN-2120324US

PATIENT
  Age: 72 Year
  Sex: Male
  Weight: 92.9 kg

DRUGS (16)
  1. LEXAPRO [Suspect]
     Active Substance: ESCITALOPRAM OXALATE
     Indication: Depression
     Dosage: 20 MG, QD
     Route: 048
     Dates: start: 20191211
  2. LEXAPRO [Suspect]
     Active Substance: ESCITALOPRAM OXALATE
     Dosage: 10 MG, QD
     Route: 048
     Dates: start: 20191111, end: 20191211
  3. GLASDEGIB [Suspect]
     Active Substance: GLASDEGIB
     Indication: Acute myeloid leukaemia
     Dosage: 100 MG, QD
     Route: 048
     Dates: start: 20190618, end: 20191212
  4. DAUNORUBICIN [Suspect]
     Active Substance: DAUNORUBICIN
     Indication: Acute myeloid leukaemia
     Dosage: 151 MG, (INDUCTION) DAILY BY CONTINUOUS INFUSION
     Route: 041
     Dates: start: 20190618, end: 20190620
  5. CYTARABINE [Suspect]
     Active Substance: CYTARABINE
     Indication: Acute myeloid leukaemia
     Dosage: 251 MG, (INDUCTION) DAILY BY CONTINUOUS INFUSION
     Route: 041
     Dates: start: 20190618, end: 20190625
  6. CYTARABINE [Suspect]
     Active Substance: CYTARABINE
     Indication: Acute myeloid leukaemia
     Dosage: 2.460 G OVER 3 HOURS TWICE DAILY ON DAYS 1, 3, 5
     Route: 041
     Dates: start: 20190920, end: 20190925
  7. COZAAR [Concomitant]
     Active Substance: LOSARTAN POTASSIUM
     Dosage: UNK
     Dates: start: 20191003
  8. VIBRAMYCIN [Concomitant]
     Active Substance: DOXYCYCLINE
     Indication: Infection prophylaxis
     Dosage: UNK
     Dates: start: 20191202
  9. ZOFRAN [Concomitant]
     Active Substance: ONDANSETRON HYDROCHLORIDE
     Dosage: UNK
     Dates: start: 20191202
  10. MELATONIN [Concomitant]
     Active Substance: MELATONIN
     Indication: Insomnia
     Dosage: UNK
     Dates: start: 20190409
  11. ANHYDROUS [Concomitant]
     Indication: Hypophosphataemia
     Dosage: UNK
     Dates: start: 20191122
  12. OASIS TEARS [Concomitant]
     Active Substance: GLYCERIN
     Indication: Dry mouth
     Dosage: UNK
     Dates: start: 20191111
  13. ZOVIRAX [Concomitant]
     Active Substance: ACYCLOVIR
     Indication: Antiviral prophylaxis
     Dosage: UNK
     Dates: start: 20190618
  14. WELLBUTRIN XL [Concomitant]
     Active Substance: BUPROPION HYDROCHLORIDE
     Indication: Depression
     Dosage: UNK
     Dates: start: 20190428
  15. TOPROL XL [Concomitant]
     Active Substance: METOPROLOL SUCCINATE
     Indication: Atrial fibrillation
     Dosage: UNK
     Dates: start: 20150212
  16. NOXAFIL [Concomitant]
     Active Substance: POSACONAZOLE
     Indication: Fungal infection
     Dosage: UNK
     Dates: start: 20191025, end: 20191211

REACTIONS (1)
  - Electrocardiogram QT prolonged [Recovered/Resolved]

NARRATIVE: CASE EVENT DATE: 20191212
